FAERS Safety Report 24552738 (Version 1)
Quarter: 2024Q4

REPORT INFORMATION
  Report Type: Other
  Country: US (occurrence: US)
  Receive Date: 20241027
  Receipt Date: 20241027
  Transmission Date: 20250115
  Serious: Yes (Death, Other)
  Sender: DEXCEL
  Company Number: None

PATIENT
  Age: 65 Year

DRUGS (8)
  1. DONEPEZIL [Suspect]
     Active Substance: DONEPEZIL
  2. BUTALBITAL [Suspect]
     Active Substance: BUTALBITAL
  3. DIAZEPAM [Suspect]
     Active Substance: DIAZEPAM
  4. NORDAZEPAM [Suspect]
     Active Substance: NORDAZEPAM
  5. DULOXETINE [Suspect]
     Active Substance: DULOXETINE
  6. TRAMADOL [Suspect]
     Active Substance: TRAMADOL
  7. DESMETRAMADOL [Suspect]
     Active Substance: DESMETRAMADOL
  8. MEMANTINE [Suspect]
     Active Substance: MEMANTINE

REACTIONS (2)
  - Overdose [Fatal]
  - Drug interaction [Fatal]
